FAERS Safety Report 19608876 (Version 1)
Quarter: 2021Q3

REPORT INFORMATION
  Report Type: Spontaneous
  Country: US (occurrence: US)
  Receive Date: 20210726
  Receipt Date: 20210726
  Transmission Date: 20211014
  Serious: No
  Sender: FDA-Public Use
  Company Number: US-GLAXOSMITHKLINE-USCH2021047678

PATIENT

DRUGS (3)
  1. EXCEDRIN MIGRAINE [Suspect]
     Active Substance: ACETAMINOPHEN\ASPIRIN\CAFFEINE
     Indication: PRODUCT USED FOR UNKNOWN INDICATION
     Dosage: UNK
  2. EMERGEN?C [Suspect]
     Active Substance: VITAMINS
     Indication: NASOPHARYNGITIS
     Dosage: UNK
  3. EMERGEN?C [Suspect]
     Active Substance: VITAMINS
     Indication: HYPERSENSITIVITY

REACTIONS (5)
  - Product use in unapproved indication [Unknown]
  - Drug effective for unapproved indication [Unknown]
  - Drug ineffective [Unknown]
  - Condition aggravated [Unknown]
  - Tremor [Unknown]
